FAERS Safety Report 8672025 (Version 2)
Quarter: 2013Q4

REPORT INFORMATION
  Report Type: Spontaneous
  Country: CH (occurrence: CH)
  Receive Date: 20120719
  Receipt Date: 20131031
  Transmission Date: 20140711
  Serious: Yes (Disabling)
  Sender: FDA-Public Use
  Company Number: CH-009507513-1207CHE005453

PATIENT
  Age: 28 Year
  Sex: Male

DRUGS (2)
  1. PROPECIA [Suspect]
     Indication: ANDROGENETIC ALOPECIA
     Dosage: 1 MG, QD
     Route: 048
     Dates: start: 201108, end: 201109
  2. PROPECIA [Suspect]
     Dosage: 1 MG, QID
     Route: 048
     Dates: start: 201111, end: 20120107

REACTIONS (5)
  - Erectile dysfunction [Not Recovered/Not Resolved]
  - Libido decreased [Not Recovered/Not Resolved]
  - Anxiety [Not Recovered/Not Resolved]
  - Testicular pain [Recovered/Resolved]
  - Semen analysis abnormal [Recovered/Resolved]
